FAERS Safety Report 9542692 (Version 1)
Quarter: 2013Q3

REPORT INFORMATION
  Report Type: Spontaneous
  Country: US (occurrence: US)
  Receive Date: 20130923
  Receipt Date: 20130923
  Transmission Date: 20140515
  Serious: Yes (Hospitalization, Other)
  Sender: FDA-Public Use
  Company Number: US-ELI_LILLY_AND_COMPANY-US201309005007

PATIENT
  Age: 48 Year
  Sex: Female

DRUGS (1)
  1. HUMALOG LISPRO [Suspect]

REACTIONS (8)
  - Diabetic ketoacidosis [Unknown]
  - Blood glucose increased [Unknown]
  - Accident [Unknown]
  - Influenza [Not Recovered/Not Resolved]
  - Headache [Unknown]
  - Nausea [Unknown]
  - Urinary tract infection [Unknown]
  - Fungal infection [Unknown]
